FAERS Safety Report 9996299 (Version 1)
Quarter: 2014Q1

REPORT INFORMATION
  Report Type: Spontaneous
  Country: US (occurrence: None)
  Receive Date: 20140221
  Receipt Date: 20140221
  Transmission Date: 20141002
  Serious: Yes (Other)
  Sender: FDA-Public Use
  Company Number: 1000052419

PATIENT
  Age: 70 Year
  Sex: Male

DRUGS (13)
  1. TUDORZA PRESSAIR [Suspect]
     Indication: CHRONIC OBSTRUCTIVE PULMONARY DISEASE
     Dosage: 800 MCG (400 MCG, 2 IN 1 D) , RESPIRATORY (INHALATION)
     Dates: start: 2013, end: 201312
  2. SYMBICORT (BUDESONIDE W/ FORMOTEROL FUMARATE) (BUDESONIDIDE W/ FORMOTEROL FUMARATE) [Concomitant]
  3. XOPENEX (LEVOSALBUTAMOL HYDROCHLORIDE) (LEVOSALBUTAMOL) [Concomitant]
  4. FLUTICASONE (FLUTICASONE) (FLUTICASONE) [Concomitant]
  5. ASPIRIN (ACETYLSALICYLIC ACID) (ACETYLSALICYLIC ACID) [Concomitant]
  6. AMBIEN (ZOLPIDEM TARTRATE) (ZOLPIDEM TARTRATE) [Concomitant]
  7. ALLOPURINOL (ALLOPURINOL) (ALLOPURINOL) [Concomitant]
  8. OMEPRAZOLE (OMEPRAZOLE) (OMEPRAZOLE) [Concomitant]
  9. SINGULAIR (MONTELUKAST SODIUM) (MONTELUKAST SODIUM) [Concomitant]
  10. LISINOPRIL (LISINOPRIL) (LISINOPRIL) [Concomitant]
  11. HYDROCHLOROTHIAZIDE (HYDROCHLOROTHIAZIDE) (HYDROCHLOROTHIAZIDE) [Concomitant]
  12. WARFARIN (WARFARIN ) (WARFARIN) [Concomitant]
  13. LASIX (FUROSEMIDE) (FUROSEMIDE) [Concomitant]

REACTIONS (1)
  - Insomnia [None]
